FAERS Safety Report 8457690-6 (Version None)
Quarter: 2012Q2

REPORT INFORMATION
  Report Type: 
  Country: None (occurrence: None)
  Receive Date: 20120618
  Receipt Date: 20120618
  Transmission Date: 20120825
  Serious: Yes (Other)
  Sender: FDA-Public Use
  Company Number: None

PATIENT
  Sex: Female
  Weight: 73.4827 kg

DRUGS (1)
  1. LIDOCAINE [Suspect]
     Dosage: 1 CC

REACTIONS (8)
  - SEIZURE LIKE PHENOMENA [None]
  - FEELING HOT [None]
  - DIZZINESS [None]
  - NAUSEA [None]
  - BLOOD PRESSURE INCREASED [None]
  - DIARRHOEA [None]
  - SYNCOPE [None]
  - FATIGUE [None]
